FAERS Safety Report 5307976-9 (Version None)
Quarter: 2007Q2

REPORT INFORMATION
  Report Type: 
  Country: None (occurrence: None)
  Receive Date: 20070426
  Receipt Date: 20070420
  Transmission Date: 20071010
  Serious: Yes (Life-Threatening, Hospitalization)
  Sender: FDA-Public Use
  Company Number: 2007UW07801

PATIENT
  Age: 3 Year
  Sex: Male

DRUGS (2)
  1. IRESSA [Suspect]
  2. TOPOTECAN [Suspect]
     Dates: start: 20070306, end: 20070317

REACTIONS (7)
  - CLOSTRIDIAL INFECTION [None]
  - GASTROENTERITIS CRYPTOSPORIDIAL [None]
  - HYPOTENSION [None]
  - INFECTION [None]
  - INTESTINAL MUCOSAL HYPERTROPHY [None]
  - NEUTROPENIA [None]
  - ROTAVIRUS TEST POSITIVE [None]
